FAERS Safety Report 6070371-1 (Version None)
Quarter: 2009Q1

REPORT INFORMATION
  Report Type: 
  Country: None (occurrence: None)
  Receive Date: 20090209
  Receipt Date: 20090129
  Transmission Date: 20090719
  Serious: Yes (Hospitalization, Other)
  Sender: FDA-Public Use
  Company Number: FI-JNJFOC-20080301675

PATIENT
  Sex: Male

DRUGS (6)
  1. REMICADE [Suspect]
     Route: 042
  2. REMICADE [Suspect]
     Route: 042
  3. REMICADE [Suspect]
     Indication: PSORIATIC ARTHROPATHY
     Route: 042
  4. SALAZOPYRIN [Suspect]
     Indication: PSORIATIC ARTHROPATHY
     Dosage: ^FOR YEARS^
     Route: 048
  5. METHOTREXATE [Suspect]
     Indication: PSORIATIC ARTHROPATHY
     Dosage: ^FOR YEARS^
     Route: 048
  6. OLMETEC [Concomitant]
     Indication: HYPERTENSION

REACTIONS (8)
  - ATELECTASIS [None]
  - HEADACHE [None]
  - LIVER FUNCTION TEST ABNORMAL [None]
  - NEUTROPHIL COUNT DECREASED [None]
  - PHOTOPSIA [None]
  - STAPHYLOCOCCAL INFECTION [None]
  - TUBERCULOSIS [None]
  - VISUAL IMPAIRMENT [None]
